FAERS Safety Report 19399060 (Version 1)
Quarter: 2021Q2

REPORT INFORMATION
  Report Type: Spontaneous
  Country: US (occurrence: US)
  Receive Date: 20210610
  Receipt Date: 20210610
  Transmission Date: 20210717
  Serious: Yes (Hospitalization)
  Sender: FDA-Public Use
  Company Number: None

PATIENT
  Age: 45 Year
  Sex: Male
  Weight: 87.4 kg

DRUGS (4)
  1. CISPLATIN. [Suspect]
     Active Substance: CISPLATIN
     Dates: end: 20210529
  2. IFOSFAMIDE. [Concomitant]
     Active Substance: IFOSFAMIDE
     Dates: end: 20210529
  3. TAXOL [Concomitant]
     Active Substance: PACLITAXEL
     Dates: end: 20210525
  4. G?CSF (FILGRASTIM, AMGEN) [Suspect]
     Active Substance: FILGRASTIM
     Dates: end: 20210603

REACTIONS (5)
  - Haemoglobin decreased [None]
  - Toxicity to various agents [None]
  - Febrile neutropenia [None]
  - Gastrointestinal disorder [None]
  - Thrombocytopenia [None]

NARRATIVE: CASE EVENT DATE: 20210606
